FAERS Safety Report 4304726-X (Version None)
Quarter: 2004Q1

REPORT INFORMATION
  Report Type: 
  Country: None (occurrence: None)
  Receive Date: 20040226
  Receipt Date: 20031124
  Transmission Date: 20041129
  Serious: No
  Sender: FDA-Public Use
  Company Number: US-GLAXOSMITHKLINE-A0441018A

PATIENT
  Sex: Female

DRUGS (3)
  1. WELLBUTRIN [Suspect]
     Indication: PANIC ATTACK
     Dosage: 450MG PER DAY
     Route: 048
     Dates: start: 20031018, end: 20031112
  2. CLONAZEPAM [Concomitant]
  3. DOXEPIN HCL [Concomitant]

REACTIONS (1)
  - BLOOD PRESSURE INCREASED [None]
